FAERS Safety Report 7073122-7 (Version None)
Quarter: 2010Q4

REPORT INFORMATION
  Report Type: 
  Country: None (occurrence: None)
  Receive Date: 20101029
  Receipt Date: 20100505
  Transmission Date: 20110411
  Serious: No
  Sender: FDA-Public Use
  Company Number: A0856902A

PATIENT
  Age: 57 Year
  Sex: Female

DRUGS (3)
  1. ADVAIR DISKUS 100/50 [Suspect]
     Indication: ASTHMA
     Route: 055
     Dates: start: 20100406, end: 20100408
  2. VENTOLIN [Concomitant]
  3. ALEVE (CAPLET) [Concomitant]

REACTIONS (4)
  - BONE PAIN [None]
  - DIZZINESS [None]
  - HEADACHE [None]
  - MYALGIA [None]
